FAERS Safety Report 9270612 (Version 1)
Quarter: 2013Q2

REPORT INFORMATION
  Report Type: Report from Study
  Country: US (occurrence: US)
  Receive Date: 20130503
  Receipt Date: 20130503
  Transmission Date: 20140414
  Serious: Yes (Hospitalization)
  Sender: FDA-Public Use
  Company Number: PHHO2013US005968

PATIENT
  Age: 65 Year
  Sex: Male
  Weight: 70.7 kg

DRUGS (5)
  1. METOPROLOL [Suspect]
     Indication: CORONARY ARTERY DISEASE
     Dosage: 5 MG, BID
     Route: 048
     Dates: start: 20110924, end: 20110925
  2. METOPROLOL [Suspect]
     Dosage: 25 MG, BID
     Route: 048
  3. ASPIRIN [Concomitant]
     Dosage: 81 MG, UNK
  4. BIVALIRUDIN [Concomitant]
  5. CLOPIDOGREL [Concomitant]
     Dosage: 75 MG, UNK

REACTIONS (1)
  - Presyncope [Recovered/Resolved]
